FAERS Safety Report 9277231 (Version 1)
Quarter: 2013Q2

REPORT INFORMATION
  Report Type: Spontaneous
  Country: US (occurrence: US)
  Receive Date: 20130508
  Receipt Date: 20130508
  Transmission Date: 20140414
  Serious: No
  Sender: FDA-Public Use
  Company Number: US-009507513-1305USA001255

PATIENT
  Age: 78 Year
  Sex: Male

DRUGS (2)
  1. JANUVIA [Suspect]
     Indication: DIABETES MELLITUS
     Dosage: 100 MG, QD
     Route: 048
     Dates: start: 20130430
  2. ASPIRIN [Concomitant]

REACTIONS (5)
  - Cardiac disorder [Unknown]
  - Hyperphagia [Unknown]
  - Abdominal distension [Unknown]
  - Eructation [Unknown]
  - Adverse event [Unknown]
